FAERS Safety Report 20566145 (Version 2)
Quarter: 2022Q1

REPORT INFORMATION
  Report Type: Report from Study
  Country: US (occurrence: US)
  Receive Date: 20220308
  Receipt Date: 20220330
  Transmission Date: 20220423
  Serious: Yes (Death, Hospitalization)
  Sender: FDA-Public Use
  Company Number: US-BAYER-2022A033997

PATIENT
  Age: 81 Year
  Sex: Female

DRUGS (4)
  1. STIVARGA [Suspect]
     Active Substance: REGORAFENIB
     Indication: Appendix cancer metastatic
     Dosage: 80 MG, QD FOR 21 DAYS, THEN OFF FOR 7 DAYS OF 28 DAY CYCLE
     Route: 048
     Dates: start: 20220228
  2. STIVARGA [Suspect]
     Active Substance: REGORAFENIB
     Indication: Neoplasm malignant
  3. STIVARGA [Suspect]
     Active Substance: REGORAFENIB
     Indication: Metastases to retroperitoneum
  4. STIVARGA [Suspect]
     Active Substance: REGORAFENIB
     Indication: Metastases to peritoneum

REACTIONS (3)
  - Death [Fatal]
  - Hospitalisation [None]
  - Off label use [None]

NARRATIVE: CASE EVENT DATE: 20220228
